FAERS Safety Report 9880605 (Version 3)
Quarter: 2014Q2

REPORT INFORMATION
  Report Type: Spontaneous
  Country: DK (occurrence: None)
  Receive Date: 20140205
  Receipt Date: 20140416
  Transmission Date: 20141212
  Serious: Yes (Hospitalization)
  Sender: FDA-Public Use
  Company Number: E2B_7266452

PATIENT
  Age: 45 Year
  Sex: Female
  Weight: 73 kg

DRUGS (2)
  1. EUTHROX [Suspect]
     Indication: HYPOTHYROIDISM
     Dosage: STYRKE: 50 MCG (100 MCG, 1 IN 1 D)
     Route: 048
     Dates: start: 20090701, end: 20131002
  2. EUTHROX [Suspect]
     Indication: HYPOTHYROIDISM
     Dosage: STYRKE: 50 MCG (100 MCG, 1 IN 1 D)
     Route: 048
     Dates: start: 20090701, end: 20131002

REACTIONS (17)
  - Vision blurred [None]
  - Temperature regulation disorder [None]
  - Pain in extremity [None]
  - Dyspnoea [None]
  - Muscle tightness [None]
  - Oedema [None]
  - Face oedema [None]
  - Back pain [None]
  - Musculoskeletal discomfort [None]
  - Skin hypertrophy [None]
  - Alopecia [None]
  - Dry skin [None]
  - Dry eye [None]
  - Weight increased [None]
  - Lacrimation increased [None]
  - Insomnia [None]
  - Head discomfort [None]
